FAERS Safety Report 6991990-1 (Version None)
Quarter: 2010Q3

REPORT INFORMATION
  Report Type: 
  Country: None (occurrence: None)
  Receive Date: 20100917
  Receipt Date: 20100910
  Transmission Date: 20110219
  Serious: Yes (Other)
  Sender: FDA-Public Use
  Company Number: US-PFIZER INC-2010076470

PATIENT
  Age: 23 Year
  Sex: Female

DRUGS (5)
  1. GEODON [Suspect]
     Indication: BIPOLAR DISORDER
     Dosage: 60 MG, DAILY
  2. LITHIUM [Concomitant]
     Dosage: UNK
  3. CYMBALTA [Concomitant]
     Dosage: UNK
  4. COGENTIN [Concomitant]
     Dosage: UNK
  5. DEXLANSOPRAZOLE [Concomitant]
     Dosage: UNK

REACTIONS (2)
  - ACCOMMODATION DISORDER [None]
  - VISUAL IMPAIRMENT [None]
